FAERS Safety Report 21956209 (Version 1)
Quarter: 2023Q1

REPORT INFORMATION
  Report Type: Report from Study
  Country: BR (occurrence: BR)
  Receive Date: 20230206
  Receipt Date: 20230206
  Transmission Date: 20230417
  Serious: Yes (Other)
  Sender: FDA-Public Use
  Company Number: BR-UCBSA-2023005449

PATIENT
  Age: 51 Year
  Sex: Female
  Weight: 58 kg

DRUGS (2)
  1. CERTOLIZUMAB PEGOL [Suspect]
     Active Substance: CERTOLIZUMAB PEGOL
     Indication: Ankylosing spondylitis
     Dosage: 200 MILLIGRAM, EV 2 WEEKS(QOW)
     Route: 058
     Dates: start: 202204
  2. COVID-19 VACCINE [Concomitant]
     Indication: Product used for unknown indication

REACTIONS (4)
  - COVID-19 [Recovered/Resolved]
  - Product availability issue [Unknown]
  - Therapy interrupted [Unknown]
  - COVID-19 immunisation [Unknown]

NARRATIVE: CASE EVENT DATE: 20221201
